FAERS Safety Report 5834998-1 (Version None)
Quarter: 2008Q3

REPORT INFORMATION
  Report Type: 
  Country: None (occurrence: None)
  Receive Date: 20080806
  Receipt Date: 20080728
  Transmission Date: 20090109
  Serious: Yes (Death, Hospitalization)
  Sender: FDA-Public Use
  Company Number: US-AMGEN-US261637

PATIENT
  Sex: Male
  Weight: 88.5 kg

DRUGS (3)
  1. ENBREL [Suspect]
     Indication: RHEUMATOID ARTHRITIS
     Route: 058
     Dates: start: 20030610, end: 20071224
  2. HYDROXYCHLOROQUINE SULFATE [Concomitant]
     Route: 065
     Dates: start: 20000217, end: 20071228
  3. SULFASALAZINE [Concomitant]
     Route: 065
     Dates: start: 19970113, end: 20071228

REACTIONS (3)
  - CARDIAC FAILURE CONGESTIVE [None]
  - CHEST PAIN [None]
  - MYOCARDIAL INFARCTION [None]
